FAERS Safety Report 16209478 (Version 4)
Quarter: 2019Q3

REPORT INFORMATION
  Report Type: Spontaneous
  Country: AU (occurrence: AU)
  Receive Date: 20190417
  Receipt Date: 20190724
  Transmission Date: 20191004
  Serious: Yes (Other)
  Sender: FDA-Public Use
  Company Number: AU-TAKEDA-2019TUS022785

PATIENT
  Age: 24 Year
  Sex: Female

DRUGS (1)
  1. ENTYVIO [Suspect]
     Active Substance: VEDOLIZUMAB
     Indication: COLITIS ULCERATIVE
     Dosage: UNK
     Route: 065
     Dates: start: 20170220, end: 20190114

REACTIONS (3)
  - Pancreatitis [Recovered/Resolved]
  - Colitis ulcerative [Recovering/Resolving]
  - Pregnancy [Recovered/Resolved]

NARRATIVE: CASE EVENT DATE: 20190312
